FAERS Safety Report 23645978 (Version 1)
Quarter: 2024Q1

REPORT INFORMATION
  Report Type: Spontaneous
  Country: US (occurrence: US)
  Receive Date: 20240319
  Receipt Date: 20240319
  Transmission Date: 20240410
  Serious: No
  Sender: FDA-Public Use
  Company Number: US-BIOGEN-2023BI01235736

PATIENT
  Age: 31 Year
  Sex: Female

DRUGS (1)
  1. TYSABRI [Suspect]
     Active Substance: NATALIZUMAB
     Indication: Multiple sclerosis
     Route: 050
     Dates: start: 20231109

REACTIONS (5)
  - Cognitive disorder [Unknown]
  - Ocular discomfort [Unknown]
  - Decreased appetite [Unknown]
  - Memory impairment [Unknown]
  - Headache [Unknown]

NARRATIVE: CASE EVENT DATE: 20231101
